FAERS Safety Report 12338918 (Version 2)
Quarter: 2016Q2

REPORT INFORMATION
  Report Type: Spontaneous
  Country: BR (occurrence: BR)
  Receive Date: 20160505
  Receipt Date: 20160621
  Transmission Date: 20160815
  Serious: Yes (Other)
  Sender: FDA-Public Use
  Company Number: BR-PFIZER INC-2016243438

PATIENT
  Sex: Female

DRUGS (1)
  1. PRISTIQ EXTENDED-RELEASE [Suspect]
     Active Substance: DESVENLAFAXINE SUCCINATE
     Dosage: UNK

REACTIONS (7)
  - Drug ineffective [Unknown]
  - Suicidal ideation [Unknown]
  - Depression [Unknown]
  - Feeling abnormal [Unknown]
  - Fatigue [Unknown]
  - Medication residue present [Unknown]
  - Intentional product misuse [Unknown]
